FAERS Safety Report 11568698 (Version 3)
Quarter: 2015Q4

REPORT INFORMATION
  Report Type: Spontaneous
  Country: US (occurrence: US)
  Receive Date: 20150916
  Receipt Date: 20151110
  Transmission Date: 20160304
  Serious: No
  Sender: FDA-Public Use
  Company Number: US-ELI_LILLY_AND_COMPANY-US200908004373

PATIENT
  Age: 73 Year
  Sex: Female

DRUGS (4)
  1. FORTEO [Suspect]
     Active Substance: TERIPARATIDE
     Indication: OSTEOPOROSIS
     Dosage: 20 UG, QD
     Route: 065
     Dates: start: 200908, end: 201004
  2. FORTEO [Suspect]
     Active Substance: TERIPARATIDE
     Dosage: 20 UG, QD
  3. FORTEO [Suspect]
     Active Substance: TERIPARATIDE
     Dosage: 20 UG, QD
     Route: 065
     Dates: start: 20110917
  4. FORTEO [Suspect]
     Active Substance: TERIPARATIDE
     Dosage: 20 UG, QD
     Route: 065

REACTIONS (12)
  - Musculoskeletal discomfort [Unknown]
  - Dizziness [Unknown]
  - Injection site bruising [Unknown]
  - Bone pain [Unknown]
  - Hearing impaired [Unknown]
  - Tooth disorder [Unknown]
  - Myalgia [Unknown]
  - Balance disorder [Unknown]
  - Intentional product misuse [Recovered/Resolved]
  - Neuropathy peripheral [Unknown]
  - Contusion [Unknown]
  - Intentional device misuse [Unknown]

NARRATIVE: CASE EVENT DATE: 200908
